FAERS Safety Report 17559790 (Version 1)
Quarter: 2020Q1

REPORT INFORMATION
  Report Type: Spontaneous
  Country: US (occurrence: US)
  Receive Date: 20200311
  Receipt Date: 20200311
  Transmission Date: 20200409
  Serious: No
  Sender: FDA-Public Use
  Company Number: None

PATIENT
  Age: 25 Year
  Sex: Female

DRUGS (1)
  1. GLATOPA [Suspect]
     Active Substance: GLATIRAMER ACETATE
     Dosage: ?          OTHER FREQUENCY:OTHER;?
     Route: 058
     Dates: start: 201910

REACTIONS (5)
  - Hypoaesthesia [None]
  - Blepharospasm [None]
  - Therapy cessation [None]
  - Arthralgia [None]
  - Paraesthesia oral [None]

NARRATIVE: CASE EVENT DATE: 20200215
